FAERS Safety Report 17114077 (Version 4)
Quarter: 2020Q1

REPORT INFORMATION
  Report Type: Spontaneous
  Country: US (occurrence: US)
  Receive Date: 20191205
  Receipt Date: 20200108
  Transmission Date: 20200409
  Serious: Yes (Other)
  Sender: FDA-Public Use
  Company Number: NVSC2019US013441

PATIENT
  Sex: Male

DRUGS (4)
  1. LENVIMA [Suspect]
     Active Substance: LENVATINIB
     Dosage: 10 MG, QD (WITH FOOD)
     Route: 048
     Dates: start: 20190921
  2. AFINITOR [Suspect]
     Active Substance: EVEROLIMUS
     Indication: RENAL CANCER
     Dosage: 5 MG, QD
     Route: 048
  3. LENVIMA [Suspect]
     Active Substance: LENVATINIB
     Indication: RENAL CANCER
     Dosage: 10 MG, QD (WITH FOOD)
     Route: 048
  4. LENVIMA [Suspect]
     Active Substance: LENVATINIB
     Dosage: 10 MG, QD (WITH FOOD)
     Route: 048

REACTIONS (8)
  - Gastric cancer [Not Recovered/Not Resolved]
  - Headache [Unknown]
  - Pericardial effusion [Unknown]
  - Blood pressure increased [Recovered/Resolved]
  - Vitamin D decreased [Recovered/Resolved]
  - Second primary malignancy [Not Recovered/Not Resolved]
  - Blood creatinine increased [Recovered/Resolved]
  - Blood iron decreased [Recovered/Resolved]
